FAERS Safety Report 6113761-0 (Version None)
Quarter: 2009Q1

REPORT INFORMATION
  Report Type: 
  Country: None (occurrence: None)
  Receive Date: 20090312
  Receipt Date: 20090306
  Transmission Date: 20090719
  Serious: Yes (Hospitalization)
  Sender: FDA-Public Use
  Company Number: DK-GENENTECH-278759

PATIENT
  Sex: Female

DRUGS (1)
  1. EFALIZUMAB [Suspect]
     Indication: PSORIASIS
     Dosage: 1 MG, 1/WEEK
     Route: 058
     Dates: start: 20080220, end: 20090223

REACTIONS (2)
  - PYREXIA [None]
  - SALMONELLOSIS [None]
